FAERS Safety Report 4556226-X (Version None)
Quarter: 2005Q1

REPORT INFORMATION
  Report Type: 
  Country: None (occurrence: None)
  Receive Date: 20050103
  Receipt Date: 20040823
  Transmission Date: 20050727
  Serious: Yes (Other)
  Sender: FDA-Public Use
  Company Number: 2004UW17834

PATIENT
  Age: 78 Year
  Sex: Female
  Weight: 86.637 kg

DRUGS (8)
  1. CRESTOR [Suspect]
     Indication: BLOOD CHOLESTEROL INCREASED
     Dates: start: 20040622, end: 20040802
  2. ALLOPURINOL [Concomitant]
  3. GLYBURIDE [Concomitant]
  4. LEXAPRO [Concomitant]
  5. BENICAR [Concomitant]
  6. ATENOLOL [Concomitant]
  7. FUROSEMIDE [Concomitant]
  8. CLONIDINE [Concomitant]

REACTIONS (3)
  - ABDOMINAL DISTENSION [None]
  - CONSTIPATION [None]
  - HOT FLUSH [None]
